FAERS Safety Report 11611764 (Version 1)
Quarter: 2015Q4

REPORT INFORMATION
  Report Type: Spontaneous
  Country: US (occurrence: US)
  Receive Date: 20151008
  Receipt Date: 20151008
  Transmission Date: 20160304
  Serious: Yes (Other)
  Sender: FDA-Public Use
  Company Number: PHHY2015US119415

PATIENT
  Age: 39 Year
  Sex: Female

DRUGS (2)
  1. PREDNISONE. [Suspect]
     Active Substance: PREDNISONE
     Dosage: REDUCING BY 20 MG EVERY 3 DAYS THEREAFTER
     Route: 048
  2. PREDNISONE. [Suspect]
     Active Substance: PREDNISONE
     Indication: ASTHMA
     Dosage: 60 MG,DAILY FOR 1 WEEK
     Route: 048

REACTIONS (1)
  - Porokeratosis [Recovering/Resolving]
